FAERS Safety Report 24266458 (Version 2)
Quarter: 2025Q4

REPORT INFORMATION
  Report Type: Spontaneous
  Country: EU (occurrence: EU)
  Receive Date: 20240830
  Receipt Date: 20251103
  Transmission Date: 20260118
  Serious: Yes (Other)
  Sender: ASTELLAS
  Company Number: EU-GILEAD-2024-0684387

PATIENT
  Age: 17 Year
  Sex: Female

DRUGS (9)
  1. AMPHOTERICIN B [Suspect]
     Active Substance: AMPHOTERICIN B
     Indication: Fungal infection
     Dosage: 3 MG/KG ONCE A DAY
     Route: 065
  2. CISPLATIN [Suspect]
     Active Substance: CISPLATIN
     Indication: Osteosarcoma
     Dosage: 120 MG/M2 (FIRST DOSE)
     Route: 065
  3. CISPLATIN [Suspect]
     Active Substance: CISPLATIN
     Dosage: 40 MG/M2 (SECOND DOSE)
     Route: 065
  4. APREPITANT [Concomitant]
     Active Substance: APREPITANT
     Indication: Antiemetic supportive care
     Dosage: 2 MG/KG
     Route: 065
  5. DEXAMETHASONE [Concomitant]
     Active Substance: DEXAMETHASONE
     Indication: Antiemetic supportive care
     Dosage: 0.15 MG/KG
     Route: 065
  6. METHOTREXATE [Concomitant]
     Active Substance: METHOTREXATE
     Indication: Osteosarcoma
     Dosage: 12 GRAM PER SQUARE METRE HIGH-DOSE METHOTREXATE (HDM)
     Route: 065
  7. METHOTREXATE [Concomitant]
     Active Substance: METHOTREXATE
     Route: 065
  8. DOXORUBICIN [Concomitant]
     Active Substance: DOXORUBICIN
     Indication: Osteosarcoma
     Dosage: 75 MG/M2
     Route: 065
  9. MEROPENEM [Concomitant]
     Active Substance: MEROPENEM
     Indication: Antibiotic therapy
     Route: 065

REACTIONS (1)
  - Tubulointerstitial nephritis [Recovered/Resolved]
